FAERS Safety Report 24021465 (Version 1)
Quarter: 2024Q2

REPORT INFORMATION
  Report Type: Spontaneous
  Country: AU (occurrence: AU)
  Receive Date: 20240627
  Receipt Date: 20240627
  Transmission Date: 20240716
  Serious: No
  Sender: FDA-Public Use
  Company Number: AU-ROCHE-3528887

PATIENT
  Sex: Male
  Weight: 75.0 kg

DRUGS (1)
  1. VABYSMO [Suspect]
     Active Substance: FARICIMAB\FARICIMAB-SVOA
     Indication: Age-related macular degeneration
     Dosage: FREQUENCY 1
     Route: 050
     Dates: start: 20240213

REACTIONS (2)
  - Occupational exposure to product [Unknown]
  - No adverse event [Unknown]
